FAERS Safety Report 9654363 (Version 1)
Quarter: 2013Q4

REPORT INFORMATION
  Report Type: Spontaneous
  Country: US (occurrence: None)
  Receive Date: 20131017
  Receipt Date: 20131017
  Transmission Date: 20140711
  Serious: Yes (Life-Threatening, Other)
  Sender: FDA-Public Use
  Company Number: 2013038393

PATIENT
  Sex: Female

DRUGS (1)
  1. ZEMAIRA [Suspect]

REACTIONS (2)
  - Cerebrovascular accident [None]
  - Fall [None]
